FAERS Safety Report 10690361 (Version 1)
Quarter: 2014Q4

REPORT INFORMATION
  Report Type: Spontaneous
  Country: US (occurrence: None)
  Receive Date: 20141217
  Receipt Date: 20141217
  Transmission Date: 20150529
  Serious: Yes (Other)
  Sender: FDA-Public Use
  Company Number: TPA2010A00519

PATIENT
  Age: 66 Year
  Sex: Female

DRUGS (7)
  1. KAPIDEX [Suspect]
     Active Substance: DEXLANSOPRAZOLE
     Indication: GASTROOESOPHAGEAL REFLUX DISEASE
     Route: 048
     Dates: start: 20091107, end: 20091123
  2. METOCLOPRAMIDE. [Concomitant]
     Active Substance: METOCLOPRAMIDE
  3. OPTIVAR (AZELASTINE HYDROCHLORIDE) [Concomitant]
  4. SALINE (SODIUM CHLORIDE) [Concomitant]
  5. FLONASE [Concomitant]
     Active Substance: FLUTICASONE PROPIONATE
  6. ASTEPRO (ALL OTHER THERAPEUTIC PRODUCTS) [Concomitant]
  7. ASMANEX [Concomitant]
     Active Substance: MOMETASONE FUROATE

REACTIONS (5)
  - Seasonal allergy [None]
  - Pharyngeal oedema [None]
  - Urticaria [None]
  - Oropharyngeal pain [None]
  - Swollen tongue [None]

NARRATIVE: CASE EVENT DATE: 20091107
